FAERS Safety Report 7013913-1 (Version None)
Quarter: 2010Q3

REPORT INFORMATION
  Report Type: 
  Country: None (occurrence: None)
  Receive Date: 20100924
  Receipt Date: 20100915
  Transmission Date: 20110219
  Serious: Yes (Hospitalization, Other)
  Sender: FDA-Public Use
  Company Number: US-MERCK-1006USA03830

PATIENT
  Age: 72 Year
  Sex: Female

DRUGS (2)
  1. FOSAMAX [Suspect]
     Indication: OSTEOPOROSIS
     Route: 048
     Dates: start: 19980601, end: 20070101
  2. FOSAMAX [Suspect]
     Route: 048
     Dates: start: 20070101, end: 20090908

REACTIONS (11)
  - ADVERSE EVENT [None]
  - ARTHRALGIA [None]
  - ARTHRITIS [None]
  - BACK PAIN [None]
  - DROOLING [None]
  - FEMUR FRACTURE [None]
  - FOOT DEFORMITY [None]
  - OSTEITIS [None]
  - OSTEOARTHRITIS [None]
  - OSTEOMA [None]
  - OSTEONECROSIS OF JAW [None]
